FAERS Safety Report 6249131-4 (Version None)
Quarter: 2009Q2

REPORT INFORMATION
  Report Type: 
  Country: None (occurrence: None)
  Receive Date: 20090624
  Receipt Date: 20090624
  Transmission Date: 20091009
  Serious: Yes (Hospitalization)
  Sender: FDA-Public Use
  Company Number: None

PATIENT
  Age: 52 Year
  Sex: Female
  Weight: 56.6996 kg

DRUGS (1)
  1. LEVAQUIN [Suspect]
     Indication: EAR INFECTION
     Dosage: 1 DAILY PO
     Route: 048
     Dates: start: 20090618, end: 20090622

REACTIONS (5)
  - COUGH [None]
  - EAR DISCOMFORT [None]
  - PAIN [None]
  - PHARYNGEAL OEDEMA [None]
  - URTICARIA [None]
